FAERS Safety Report 19773221 (Version 1)
Quarter: 2021Q3

REPORT INFORMATION
  Report Type: Report from Study
  Country: FR (occurrence: FR)
  Receive Date: 20210901
  Receipt Date: 20210901
  Transmission Date: 20211014
  Serious: Yes (Life-Threatening, Hospitalization)
  Sender: FDA-Public Use
  Company Number: FR-ROCHE-2777483

PATIENT
  Age: 82 Year
  Sex: Female
  Weight: 48 kg

DRUGS (13)
  1. ATEZOLIZUMAB. [Suspect]
     Active Substance: ATEZOLIZUMAB
     Indication: NON-SMALL CELL LUNG CANCER
     Dosage: EVERY 1 CYCLE(S) DAY1 OF CYCLE OF 21 DAYS
     Route: 041
     Dates: start: 20210210, end: 20210210
  2. PEMETREXED. [Suspect]
     Active Substance: PEMETREXED
     Indication: NON-SMALL CELL LUNG CANCER
     Dosage: EVERY 1 CYCLE(S) DAY1 OF CYCLE OF 21 DAYS
     Route: 042
     Dates: start: 20210210, end: 20210210
  3. PELGRAZ [Concomitant]
     Active Substance: PEGFILGRASTIM
     Route: 058
     Dates: start: 20210210
  4. FUROSEMIDE. [Concomitant]
     Active Substance: FUROSEMIDE
  5. FUMAFER [Concomitant]
     Active Substance: FERROUS FUMARATE
     Route: 048
  6. ATEZOLIZUMAB. [Suspect]
     Active Substance: ATEZOLIZUMAB
     Dosage: CUMULATIVE DOSE:9600 MG?CYCLE 8
     Route: 041
     Dates: start: 20210722
  7. ENDOTELON [Concomitant]
     Active Substance: HERBALS\VITIS VINIFERA LEAF
     Route: 048
     Dates: start: 202101
  8. DIFFU?K [Concomitant]
     Active Substance: POTASSIUM CHLORIDE
     Route: 048
  9. FOLIC ACID. [Concomitant]
     Active Substance: FOLIC ACID
  10. PEMETREXED. [Suspect]
     Active Substance: PEMETREXED
     Dosage: FOR 7 CYCLES?CUMULATIVE DOSE:3900 MG
     Route: 042
     Dates: end: 20210723
  11. CARBOPLATIN. [Suspect]
     Active Substance: CARBOPLATIN
     Indication: NON-SMALL CELL LUNG CANCER
     Dosage: EVERY 1 CYCLE(S) DAY1 OF CYCLE OF 21 DAYS
     Route: 042
     Dates: start: 20210210, end: 20210210
  12. PIASCLEDINE [Concomitant]
     Active Substance: AVOCADO OIL\SOYBEAN OIL
     Route: 048
     Dates: start: 2016
  13. MAGNESIUM [Concomitant]
     Active Substance: MAGNESIUM
     Route: 048
     Dates: start: 202009

REACTIONS (2)
  - Congestive cardiomyopathy [Recovered/Resolved with Sequelae]
  - Febrile bone marrow aplasia [Recovered/Resolved]

NARRATIVE: CASE EVENT DATE: 20210212
